FAERS Safety Report 21305490 (Version 1)
Quarter: 2022Q3

REPORT INFORMATION
  Report Type: Spontaneous
  Country: FR (occurrence: FR)
  Receive Date: 20220908
  Receipt Date: 20220908
  Transmission Date: 20221027
  Serious: Yes (Hospitalization)
  Sender: FDA-Public Use
  Company Number: None

PATIENT
  Age: 77 Year
  Sex: Female
  Weight: 87 kg

DRUGS (3)
  1. AMIODARONE HYDROCHLORIDE [Suspect]
     Active Substance: AMIODARONE HYDROCHLORIDE
     Indication: Atrial fibrillation
     Dosage: AMIODARONE (CHLORHYDRATE D^), UNIT DOSE: 200 MG, FREQUENCY TIME : 1 DAY, DURATION : 18 DAYS
     Dates: start: 20211209, end: 20211227
  2. IOVERSOL [Suspect]
     Active Substance: IOVERSOL
     Indication: Scan with contrast
     Dosage: UNIT DOSE : 1 DF, DURATION : 1 DAY
     Dates: start: 20211215, end: 20211215
  3. IOMERON [Suspect]
     Active Substance: IOMEPROL
     Indication: Scan with contrast
     Dosage: UNIT DOSE : 1 DF, DURATION: 1 DAY
     Dates: start: 20211208, end: 20211208

REACTIONS (2)
  - Rash [Recovered/Resolved]
  - Eosinophilia [Recovered/Resolved]

NARRATIVE: CASE EVENT DATE: 20211223
